FAERS Safety Report 12739140 (Version 1)
Quarter: 2016Q3

REPORT INFORMATION
  Report Type: Spontaneous
  Country: US (occurrence: US)
  Receive Date: 20160912
  Receipt Date: 20160912
  Transmission Date: 20161109
  Serious: Yes (Other)
  Sender: FDA-Public Use
  Company Number: US-JUBILANT CADISTA PHARMACEUTICALS-2016JUB00325

PATIENT
  Age: 64 Year
  Sex: Female

DRUGS (19)
  1. ALBUTEROL. [Concomitant]
     Active Substance: ALBUTEROL
     Route: 065
  2. HYDROCODONE/ACETAMENOPHEN [Concomitant]
     Dosage: 5/325 MG
     Route: 065
  3. SOLIFENACTIN [Concomitant]
     Route: 065
  4. MULTIVITAMIN [Concomitant]
     Active Substance: VITAMINS
     Route: 048
  5. PREDNISONE. [Suspect]
     Active Substance: PREDNISONE
     Dosage: 30 MG, UNK
  6. NEBIVOLOL. [Concomitant]
     Active Substance: NEBIVOLOL
     Dosage: 2.5 MG, UNK
     Route: 065
  7. PREDNISONE. [Suspect]
     Active Substance: PREDNISONE
     Indication: EOSINOPHILIC CYSTITIS
     Dosage: 40 MG, UNK
     Route: 065
     Dates: start: 201407
  8. THEOPHYLLINE ANHYDROUS. [Concomitant]
     Active Substance: THEOPHYLLINE ANHYDROUS
     Dosage: 300 MG, UNK
     Route: 065
  9. PREDNISONE. [Suspect]
     Active Substance: PREDNISONE
     Dosage: 10 MG, UNK
  10. CICLESONIDE [Concomitant]
     Active Substance: CICLESONIDE
     Route: 065
  11. HYDROXYZINE [Concomitant]
     Active Substance: HYDROXYZINE\HYDROXYZINE HYDROCHLORIDE
     Dosage: 30 MG, 3X/DAY
     Route: 048
  12. PREDNISONE. [Suspect]
     Active Substance: PREDNISONE
     Dosage: 20 MG, UNK
  13. SOLIFNENACIN [Concomitant]
     Dosage: 10 MG, UNK
     Route: 065
  14. PHENAZOPYRIDINE. [Concomitant]
     Active Substance: PHENAZOPYRIDINE
     Dosage: 100 MG, UNK
     Route: 065
  15. OMEPRAZOLE. [Concomitant]
     Active Substance: OMEPRAZOLE
     Dosage: 20 MG, UNK
     Route: 065
  16. PREDNISONE. [Suspect]
     Active Substance: PREDNISONE
     Dosage: UNK
  17. PREDNISONE. [Suspect]
     Active Substance: PREDNISONE
     Dosage: 7.5 MG, 1X/DAY
  18. SALMETROL [Concomitant]
     Route: 065
  19. SUCRALFATE. [Concomitant]
     Active Substance: SUCRALFATE
     Dosage: 1000 MG, UNK
     Route: 065

REACTIONS (3)
  - Hip fracture [Unknown]
  - Depression [Recovering/Resolving]
  - Eosinophilic cystitis [Unknown]
